FAERS Safety Report 4314002-7 (Version None)
Quarter: 2004Q1

REPORT INFORMATION
  Report Type: 
  Country: None (occurrence: None)
  Receive Date: 20040309
  Receipt Date: 20040302
  Transmission Date: 20041129
  Serious: Yes (Other)
  Sender: FDA-Public Use
  Company Number: PHEH2004US02580

PATIENT
  Age: 77 Year
  Sex: Female

DRUGS (5)
  1. STARLIX [Suspect]
     Indication: DIABETES MELLITUS NON-INSULIN-DEPENDENT
     Dosage: 120 MG, TID
     Route: 048
  2. DIOVAN [Concomitant]
  3. TEGRETOL [Concomitant]
  4. SYNTHROID [Concomitant]
  5. NORVASK [Concomitant]

REACTIONS (3)
  - BLOOD CREATININE INCREASED [None]
  - DIZZINESS [None]
  - FATIGUE [None]
